FAERS Safety Report 4667648-0 (Version None)
Quarter: 2005Q2

REPORT INFORMATION
  Report Type: 
  Country: None (occurrence: None)
  Receive Date: 20050517
  Receipt Date: 20050211
  Transmission Date: 20051028
  Serious: Yes (Hospitalization)
  Sender: FDA-Public Use
  Company Number: PHEH2005US01972

PATIENT
  Age: 83 Year
  Sex: Male

DRUGS (6)
  1. GLEEVEC [Suspect]
     Dosage: 600 MG, QD, ORAL
     Route: 048
     Dates: start: 20041112, end: 20050101
  2. GLEEVEC [Suspect]
     Dosage: 600 MG, QD, ORAL
     Route: 048
     Dates: end: 20050101
  3. MAXZIDE [Concomitant]
  4. ATORVASTATIN CALCIUM [Concomitant]
  5. LISINOPRIL [Concomitant]
  6. FOSAMAX [Concomitant]

REACTIONS (1)
  - RENAL DISORDER [None]
